FAERS Safety Report 10023346 (Version 1)
Quarter: 2014Q1

REPORT INFORMATION
  Report Type: Spontaneous
  Country: US (occurrence: US)
  Receive Date: 20140320
  Receipt Date: 20140320
  Transmission Date: 20141002
  Serious: Yes (Hospitalization)
  Sender: FDA-Public Use
  Company Number: US-BEH-2014040314

PATIENT
  Age: 43 Year
  Sex: Female

DRUGS (2)
  1. BERINERT [Suspect]
     Indication: HEREDITARY ANGIOEDEMA
     Dates: start: 20140120
  2. CINRYZE [Concomitant]

REACTIONS (2)
  - Swelling face [Unknown]
  - Drug ineffective [Unknown]
